FAERS Safety Report 23700591 (Version 2)
Quarter: 2024Q2

REPORT INFORMATION
  Report Type: Spontaneous
  Country: US (occurrence: US)
  Receive Date: 20240403
  Receipt Date: 20240419
  Transmission Date: 20240716
  Serious: No
  Sender: FDA-Public Use
  Company Number: US-BRISTOL-MYERS SQUIBB COMPANY-2024-052403

PATIENT
  Age: 86 Year
  Sex: Male

DRUGS (2)
  1. POMALYST [Suspect]
     Active Substance: POMALIDOMIDE
     Indication: Plasma cell myeloma
     Route: 048
     Dates: start: 202309
  2. NINLARO [Suspect]
     Active Substance: IXAZOMIB CITRATE
     Indication: Myelodysplastic syndrome
     Route: 048

REACTIONS (1)
  - Laboratory test abnormal [Unknown]
